FAERS Safety Report 7322615-3 (Version None)
Quarter: 2011Q1

REPORT INFORMATION
  Report Type: 
  Country: None (occurrence: None)
  Receive Date: 20110301
  Receipt Date: 20110225
  Transmission Date: 20110831
  Serious: Yes (Other)
  Sender: FDA-Public Use
  Company Number: US-PFIZER INC-2011036173

PATIENT
  Sex: Female

DRUGS (2)
  1. GEODON [Suspect]
     Dosage: 80 MG
  2. GEODON [Suspect]
     Dosage: 60 MG, UNK

REACTIONS (5)
  - GAIT DISTURBANCE [None]
  - MANIA [None]
  - FEELING ABNORMAL [None]
  - DEPRESSION [None]
  - SOMNOLENCE [None]
